FAERS Safety Report 16238006 (Version 1)
Quarter: 2019Q2

REPORT INFORMATION
  Report Type: Spontaneous
  Country: US (occurrence: US)
  Receive Date: 20190321
  Receipt Date: 20190321
  Transmission Date: 20190711
  Serious: Yes (Hospitalization)
  Sender: FDA-Public Use
  Company Number: None

PATIENT
  Age: 55 Year
  Sex: Female

DRUGS (1)
  1. AFINITOR [Suspect]
     Active Substance: EVEROLIMUS
     Indication: NEUROMYOPATHY
     Dosage: 10  MG DISSOLVED IN 30 ML OF WATER ONCE DAILY VIA G- TUBE
     Dates: start: 20190124

REACTIONS (1)
  - Hospitalisation [None]
